FAERS Safety Report 8597539-4 (Version None)
Quarter: 2012Q3

REPORT INFORMATION
  Report Type: 
  Country: None (occurrence: None)
  Receive Date: 20120802
  Receipt Date: 20120723
  Transmission Date: 20120928
  Serious: Yes (Death, Other)
  Sender: FDA-Public Use
  Company Number: 2012P1051321

PATIENT

DRUGS (3)
  1. CARISOPRODOL [Suspect]
     Indication: COMPLETED SUICIDE
  2. HYDROCODONE BITARTRATE [Suspect]
     Indication: COMPLETED SUICIDE
  3. ALCOHOL (NO PREF. NAME) [Suspect]
     Indication: COMPLETED SUICIDE

REACTIONS (2)
  - TOXICITY TO VARIOUS AGENTS [None]
  - COMPLETED SUICIDE [None]
